FAERS Safety Report 7735142-6 (Version None)
Quarter: 2011Q3

REPORT INFORMATION
  Report Type: 
  Country: None (occurrence: None)
  Receive Date: 20110907
  Receipt Date: 20110902
  Transmission Date: 20111222
  Serious: Yes (Hospitalization, Other)
  Sender: FDA-Public Use
  Company Number: US-AMGEN-USASP2011043156

PATIENT
  Age: 51 Year
  Sex: Female
  Weight: 172.34 kg

DRUGS (21)
  1. NPLATE [Suspect]
  2. NPLATE [Suspect]
  3. NPLATE [Suspect]
  4. NPLATE [Suspect]
  5. NPLATE [Suspect]
  6. NPLATE [Suspect]
  7. NPLATE [Suspect]
  8. NPLATE [Suspect]
     Indication: IDIOPATHIC THROMBOCYTOPENIC PURPURA
     Dosage: 10 MUG/KG, QWK
     Route: 058
     Dates: start: 20100426, end: 20110523
  9. NPLATE [Suspect]
  10. NPLATE [Suspect]
  11. NPLATE [Suspect]
  12. NPLATE [Suspect]
  13. NPLATE [Suspect]
  14. NPLATE [Suspect]
  15. NPLATE [Suspect]
  16. NPLATE [Suspect]
     Dosage: UNK
  17. NPLATE [Suspect]
  18. NPLATE [Suspect]
  19. PREDNISONE [Concomitant]
     Indication: IDIOPATHIC THROMBOCYTOPENIC PURPURA
     Dosage: UNK
  20. NPLATE [Suspect]
  21. NPLATE [Suspect]

REACTIONS (2)
  - DRUG INEFFECTIVE [None]
  - THROMBOCYTOPENIA [None]
